FAERS Safety Report 5586017-2 (Version None)
Quarter: 2007Q4

REPORT INFORMATION
  Report Type: 
  Country: None (occurrence: None)
  Receive Date: 20071205
  Receipt Date: 20070227
  Transmission Date: 20080405
  Serious: Yes (Hospitalization, Other)
  Sender: FDA-Public Use
  Company Number: HQWYE200328FEB07

PATIENT
  Age: 24 Year
  Sex: Female

DRUGS (3)
  1. EFFEXOR XR [Suspect]
     Indication: ANXIETY
     Dosage: 75 MG 3X PER 1 DAY, ORAL ; 75 MG 3X PER 1 DAY, ORAL ; 75 MG 3X PER 1 DAY, ORAL
     Route: 048
     Dates: start: 20040101, end: 20050101
  2. EFFEXOR XR [Suspect]
     Indication: ANXIETY
     Dosage: 75 MG 3X PER 1 DAY, ORAL ; 75 MG 3X PER 1 DAY, ORAL ; 75 MG 3X PER 1 DAY, ORAL
     Route: 048
     Dates: start: 20050101, end: 20060101
  3. EFFEXOR XR [Suspect]
     Indication: ANXIETY
     Dosage: 75 MG 3X PER 1 DAY, ORAL ; 75 MG 3X PER 1 DAY, ORAL ; 75 MG 3X PER 1 DAY, ORAL
     Route: 048
     Dates: start: 20050101

REACTIONS (3)
  - ANXIETY [None]
  - DEPRESSION [None]
  - DRUG WITHDRAWAL SYNDROME [None]
